FAERS Safety Report 11315340 (Version 1)
Quarter: 2015Q3

REPORT INFORMATION
  Report Type: Spontaneous
  Country: BR (occurrence: BR)
  Receive Date: 20150727
  Receipt Date: 20150727
  Transmission Date: 20151125
  Serious: Yes (Other)
  Sender: FDA-Public Use
  Company Number: PHHY2015BR089988

PATIENT
  Sex: Female

DRUGS (2)
  1. OLCADIL [Suspect]
     Active Substance: CLOXAZOLAM
     Indication: PRODUCT USED FOR UNKNOWN INDICATION
     Route: 065
  2. TEGRETOL [Suspect]
     Active Substance: CARBAMAZEPINE
     Indication: PRODUCT USED FOR UNKNOWN INDICATION
     Dosage: (TEGRETOL CR 200 MG)
     Route: 065

REACTIONS (4)
  - Intracranial aneurysm [Unknown]
  - Neck pain [Unknown]
  - Eye swelling [Unknown]
  - Nervousness [Unknown]
